FAERS Safety Report 19857617 (Version 2)
Quarter: 2021Q3

REPORT INFORMATION
  Report Type: Spontaneous
  Country: US (occurrence: US)
  Receive Date: 20210921
  Receipt Date: 20210923
  Transmission Date: 20211014
  Serious: Yes (Other)
  Sender: FDA-Public Use
  Company Number: US-AUROBINDO-AUR-APL-2021-039097

PATIENT
  Age: 36 Year
  Sex: Female

DRUGS (8)
  1. LAMOTRIGINE. [Suspect]
     Active Substance: LAMOTRIGINE
     Indication: SEIZURE
     Dosage: 200 MILLIGRAM
     Route: 065
  2. LORAZEPAM. [Suspect]
     Active Substance: LORAZEPAM
     Indication: PSYCHOTIC DISORDER
     Dosage: UNK
     Route: 065
  3. HALOPERIDOL. [Suspect]
     Active Substance: HALOPERIDOL
     Indication: PSYCHOTIC DISORDER
     Dosage: UNK
     Route: 065
  4. LURASIDONE [Suspect]
     Active Substance: LURASIDONE
     Indication: PSYCHOTIC DISORDER
     Dosage: UNK
     Route: 065
  5. DIVALPROEX [Suspect]
     Active Substance: DIVALPROEX SODIUM
     Indication: GENERALISED TONIC-CLONIC SEIZURE
     Dosage: UNK
     Route: 065
  6. RISPERIDONE. [Suspect]
     Active Substance: RISPERIDONE
     Indication: PSYCHOTIC DISORDER
     Dosage: UNK
     Route: 065
  7. TOPIRAMATE. [Suspect]
     Active Substance: TOPIRAMATE
     Indication: EPILEPSY
     Dosage: 200 MILLIGRAM
     Route: 065
  8. LACOSAMIDE. [Suspect]
     Active Substance: LACOSAMIDE
     Indication: PRODUCT USED FOR UNKNOWN INDICATION
     Dosage: 150 MILLIGRAM
     Route: 065

REACTIONS (2)
  - Drug ineffective [Unknown]
  - Exposure during pregnancy [Unknown]
